FAERS Safety Report 9393896 (Version 2)
Quarter: 2013Q3

REPORT INFORMATION
  Report Type: Spontaneous
  Country: GB (occurrence: None)
  Receive Date: 20130705
  Receipt Date: 20130722
  Transmission Date: 20140515
  Serious: Yes (Other)
  Sender: FDA-Public Use
  Company Number: SYM-2013-05258

PATIENT
  Age: 76 Year
  Sex: Male

DRUGS (9)
  1. DILTIAZEM (DILTIAZEM) (DILTIAZEM) [Suspect]
     Indication: HYPERTENSION
     Dosage: 180MG TOTAL
     Route: 048
     Dates: start: 20130606, end: 20130606
  2. DILTIAZEM (DILTIAZEM) (DILTIAZEM) [Suspect]
     Indication: TACHYCARDIA
     Dosage: 180MG TOTAL
     Route: 048
     Dates: start: 20130606, end: 20130606
  3. AMLODIPINE [Suspect]
     Indication: HYPERTENSION
     Route: 048
     Dates: start: 20130606, end: 20130606
  4. RAMIPRIL (RAMIPRIL) [Concomitant]
  5. FRUSEMIDE (FUROSEMIDE) (FUROSEMIDE) [Concomitant]
  6. BETAHISTINE (BETAHISTINE) (BETAHISTINE) [Concomitant]
  7. SIMVASTATIN (SIMVASTATIN) (SIMVASTATIN) [Concomitant]
  8. WARFARIN (WARFARIN) (WARFARIN) [Concomitant]
  9. AMLODIPINE (AMLODIPINE) (AMLODIPINE) [Concomitant]

REACTIONS (4)
  - Hypotension [None]
  - Renal failure acute [None]
  - Hepatitis [None]
  - Drug hypersensitivity [None]
